FAERS Safety Report 9329875 (Version 1)
Quarter: 2013Q2

REPORT INFORMATION
  Report Type: Spontaneous
  Country: US (occurrence: US)
  Receive Date: 20130604
  Receipt Date: 20130604
  Transmission Date: 20140414
  Serious: No
  Sender: FDA-Public Use
  Company Number: US-009507513-1305USA015853

PATIENT
  Sex: Female

DRUGS (1)
  1. CLARITIN REDITABS 12HR [Suspect]
     Indication: RHINORRHOEA
     Dosage: 5 MG, ONCE
     Route: 048
     Dates: start: 20130513

REACTIONS (1)
  - Drug effect decreased [Unknown]
